FAERS Safety Report 6176729-4 (Version None)
Quarter: 2009Q2

REPORT INFORMATION
  Report Type: 
  Country: None (occurrence: None)
  Receive Date: 20090501
  Receipt Date: 20090423
  Transmission Date: 20091009
  Serious: Yes (Hospitalization)
  Sender: FDA-Public Use
  Company Number: AT-GENENTECH-281953

PATIENT
  Age: 13 Year
  Sex: Male

DRUGS (1)
  1. MABTHERA [Suspect]
     Indication: LEUKAEMIA
     Dosage: 40 MG, UNK
     Route: 037

REACTIONS (1)
  - CONVULSION [None]
